FAERS Safety Report 6981005-3 (Version None)
Quarter: 2010Q3

REPORT INFORMATION
  Report Type: 
  Country: None (occurrence: None)
  Receive Date: 20100914
  Receipt Date: 20100909
  Transmission Date: 20110219
  Serious: Yes (Hospitalization)
  Sender: FDA-Public Use
  Company Number: D0068838A

PATIENT
  Sex: Male

DRUGS (13)
  1. REQUIP [Suspect]
     Indication: PARKINSONISM
     Dosage: 6MG PER DAY
     Route: 065
  2. STALEVO 100 [Concomitant]
     Route: 065
  3. PIRIBEDIL [Concomitant]
     Route: 065
  4. NULYTELY [Concomitant]
     Route: 065
  5. CONSTIPATION DRUG [Concomitant]
     Dosage: 2MG PER DAY
     Route: 065
  6. MADOPAR [Concomitant]
     Route: 065
  7. INSULIN RAPID [Concomitant]
     Route: 065
  8. ASPIRIN [Concomitant]
     Dosage: 100MG PER DAY
     Route: 065
  9. LEVOTHYROXINE SODIUM [Concomitant]
     Dosage: 150MG PER DAY
     Route: 065
  10. MACROGOL + ELECTROLYTES [Concomitant]
     Route: 065
  11. LEFAX [Concomitant]
     Route: 065
  12. LAXOBERAL [Concomitant]
     Route: 065
  13. ANALGESIC [Concomitant]
     Route: 065

REACTIONS (6)
  - DIZZINESS [None]
  - DRUG INEFFECTIVE [None]
  - GASTRITIS [None]
  - GASTROINTESTINAL MOTILITY DISORDER [None]
  - POSTOPERATIVE HERNIA [None]
  - SUBILEUS [None]
